FAERS Safety Report 4831081-9 (Version None)
Quarter: 2005Q4

REPORT INFORMATION
  Report Type: 
  Country: None (occurrence: None)
  Receive Date: 20051114
  Receipt Date: 20051103
  Transmission Date: 20060501
  Serious: Yes (Death)
  Sender: FDA-Public Use
  Company Number: 032-54

PATIENT
  Age: 79 Year
  Sex: Female

DRUGS (4)
  1. TEVETEN [Suspect]
     Indication: HYPERTENSION
     Dosage: 600 MG QD PO
     Route: 048
  2. FUROSEMIDE [Concomitant]
  3. PHENPROCOUMON [Concomitant]
  4. DIGITOXIN TAB [Concomitant]

REACTIONS (1)
  - MYOCARDIAL INFARCTION [None]
